FAERS Safety Report 10586678 (Version 2)
Quarter: 2014Q4

REPORT INFORMATION
  Report Type: Spontaneous
  Country: US (occurrence: US)
  Receive Date: 20141117
  Receipt Date: 20141211
  Transmission Date: 20150529
  Serious: Yes (Other)
  Sender: FDA-Public Use
  Company Number: US-MERCK-1411USA004150

PATIENT

DRUGS (4)
  1. RITONAVIR. [Suspect]
     Active Substance: RITONAVIR
     Dosage: 100 MG, QD
  2. RIBAVIRIN. [Suspect]
     Active Substance: RIBAVIRIN
     Indication: CHRONIC HEPATITIS C
     Dosage: WEIGHT BASED
  3. OMBITASVIR [Suspect]
     Active Substance: OMBITASVIR
     Dosage: 25 MG, DAILY
  4. DASABUVIR [Suspect]
     Active Substance: DASABUVIR
     Dosage: 250 MG, TWICE A DAY

REACTIONS (1)
  - Adverse event [Unknown]
